FAERS Safety Report 13843694 (Version 2)
Quarter: 2017Q3

REPORT INFORMATION
  Report Type: Spontaneous
  Country: US (occurrence: US)
  Receive Date: 20170808
  Receipt Date: 20170811
  Transmission Date: 20171127
  Serious: No
  Sender: FDA-Public Use
  Company Number: US-ASTRAZENECA-2017SE80154

PATIENT
  Age: 33 Year
  Sex: Female
  Weight: 81.6 kg

DRUGS (2)
  1. RHINOCORT ALLERGY [Suspect]
     Active Substance: BUDESONIDE
     Indication: PRODUCT USED FOR UNKNOWN INDICATION
     Dosage: TWO SPRAYS PER NOSTRIL
     Route: 045
     Dates: start: 20170721, end: 20170724
  2. RHINOCORT ALLERGY [Suspect]
     Active Substance: BUDESONIDE
     Indication: MULTIPLE ALLERGIES
     Dosage: TWO SPRAYS PER NOSTRIL
     Route: 045
     Dates: start: 20170721, end: 20170724

REACTIONS (3)
  - Headache [Recovered/Resolved]
  - Ear pain [Recovered/Resolved]
  - Product container issue [Unknown]

NARRATIVE: CASE EVENT DATE: 20170721
